FAERS Safety Report 15545794 (Version 1)
Quarter: 2018Q4

REPORT INFORMATION
  Report Type: Spontaneous
  Country: CA (occurrence: CA)
  Receive Date: 20181024
  Receipt Date: 20181024
  Transmission Date: 20190205
  Serious: Yes (Other)
  Sender: FDA-Public Use
  Company Number: CA-JNJFOC-20181030075

PATIENT
  Age: 54 Year
  Sex: Female
  Weight: 72.58 kg

DRUGS (3)
  1. REACTINE [CETIRIZINE HYDROCHLORIDE] [Suspect]
     Active Substance: CETIRIZINE HYDROCHLORIDE
     Indication: URTICARIA
     Route: 048
  2. SYNTHROID [Concomitant]
     Active Substance: LEVOTHYROXINE SODIUM
     Indication: PRODUCT USED FOR UNKNOWN INDICATION
     Route: 065
  3. REACTINE [CETIRIZINE HYDROCHLORIDE] [Suspect]
     Active Substance: CETIRIZINE HYDROCHLORIDE
     Route: 048

REACTIONS (5)
  - Urticaria [Recovering/Resolving]
  - Impaired quality of life [Recovering/Resolving]
  - Drug withdrawal syndrome [Recovering/Resolving]
  - Insomnia [Recovering/Resolving]
  - Pruritus [Recovering/Resolving]
